FAERS Safety Report 19051491 (Version 1)
Quarter: 2021Q1

REPORT INFORMATION
  Report Type: Report from Study
  Country: IN (occurrence: IN)
  Receive Date: 20210324
  Receipt Date: 20210324
  Transmission Date: 20210420
  Serious: Yes (Other)
  Sender: FDA-Public Use
  Company Number: IN-PFIZER INC-2021259895

PATIENT

DRUGS (1)
  1. PHENYTOIN SODIUM. [Suspect]
     Active Substance: PHENYTOIN SODIUM
     Indication: MOOD DISORDER DUE TO A GENERAL MEDICAL CONDITION
     Dosage: UNK
     Route: 064

REACTIONS (2)
  - Developmental delay [Unknown]
  - Maternal exposure during pregnancy [Unknown]
